FAERS Safety Report 4582077-6 (Version None)
Quarter: 2005Q1

REPORT INFORMATION
  Report Type: 
  Country: None (occurrence: None)
  Receive Date: 20050119
  Receipt Date: 20040622
  Transmission Date: 20050727
  Serious: Yes (Other)
  Sender: FDA-Public Use
  Company Number: A03200401999

PATIENT
  Age: 98 Year
  Sex: Female
  Weight: 41.2773 kg

DRUGS (6)
  1. PLAVIX [Suspect]
     Indication: MYOCARDIAL INFARCTION
     Dosage: 75 MG QD - ORAL
     Route: 048
     Dates: start: 20010530
  2. CALCIUM GLUCONATE [Concomitant]
  3. METOPROLOL SUCCINATE [Concomitant]
  4. RABEPRAZOLE SODIUM [Concomitant]
  5. AMLODIPINE BESYLATE [Concomitant]
  6. VITAMINS NOS [Concomitant]

REACTIONS (2)
  - HAEMATOCHEZIA [None]
  - HAEMORRHAGE URINARY TRACT [None]
